FAERS Safety Report 10305601 (Version 2)
Quarter: 2014Q3

REPORT INFORMATION
  Report Type: Spontaneous
  Country: AU (occurrence: AU)
  Receive Date: 20140715
  Receipt Date: 20140820
  Transmission Date: 20150326
  Serious: Yes (Other)
  Sender: FDA-Public Use
  Company Number: AU-PFIZER INC-2014197307

PATIENT
  Age: 45 Year
  Sex: Male

DRUGS (3)
  1. LANREOTIDE [Suspect]
     Active Substance: LANREOTIDE
     Dosage: UNK (BACK ON LANREOTIDE)
  2. CABERGOLINE. [Suspect]
     Active Substance: CABERGOLINE
     Dosage: UNK
  3. LANREOTIDE [Suspect]
     Active Substance: LANREOTIDE
     Dosage: UNK

REACTIONS (3)
  - Drug ineffective [Unknown]
  - Optic neuropathy [Unknown]
  - Drug intolerance [Unknown]
